FAERS Safety Report 7994866-6 (Version None)
Quarter: 2011Q4

REPORT INFORMATION
  Report Type: 
  Country: None (occurrence: None)
  Receive Date: 20111220
  Receipt Date: 20111209
  Transmission Date: 20120403
  Serious: Yes (Hospitalization, Other)
  Sender: FDA-Public Use
  Company Number: US-BAXTER-2011BH037103

PATIENT
  Sex: Female

DRUGS (1)
  1. DIANEAL [Suspect]
     Indication: PERITONEAL DIALYSIS
     Route: 033

REACTIONS (7)
  - BACK PAIN [None]
  - ARTHRALGIA [None]
  - RHEUMATOID ARTHRITIS [None]
  - HYPOCALCAEMIA [None]
  - HYPOTHYROIDISM [None]
  - ANAEMIA [None]
  - MUSCLE SPASMS [None]
